FAERS Safety Report 26015126 (Version 1)
Quarter: 2025Q4

REPORT INFORMATION
  Report Type: Spontaneous
  Country: VC (occurrence: VC)
  Receive Date: 20251109
  Receipt Date: 20251109
  Transmission Date: 20260118
  Serious: Yes (Hospitalization)
  Sender: EPIC PHARM
  Company Number: VC-EPICPHARMA-VC-2025EPCLIT01194

PATIENT
  Age: 61 Year
  Sex: Male

DRUGS (23)
  1. OXYCODONE HYDROCHLORIDE [Suspect]
     Active Substance: OXYCODONE HYDROCHLORIDE
     Indication: Product used for unknown indication
     Route: 065
     Dates: start: 201404
  2. OXYCODONE HYDROCHLORIDE [Suspect]
     Active Substance: OXYCODONE HYDROCHLORIDE
     Dosage: LOW-DOSE
     Route: 065
  3. OXYCODONE HYDROCHLORIDE [Suspect]
     Active Substance: OXYCODONE HYDROCHLORIDE
     Route: 065
     Dates: start: 201905
  4. OXYCONTIN [Concomitant]
     Active Substance: OXYCODONE HYDROCHLORIDE
     Indication: Pain management
     Route: 065
     Dates: start: 201404
  5. OXYCONTIN [Concomitant]
     Active Substance: OXYCODONE HYDROCHLORIDE
     Route: 065
     Dates: start: 201912
  6. SUBOXONE [Concomitant]
     Active Substance: BUPRENORPHINE HYDROCHLORIDE\NALOXONE HYDROCHLORIDE
     Indication: Pain management
     Route: 065
  7. METHADONE [Concomitant]
     Active Substance: METHADONE HYDROCHLORIDE
     Indication: Pain management
     Dosage: HIGH-DOSE
     Route: 065
  8. METHADONE [Concomitant]
     Active Substance: METHADONE HYDROCHLORIDE
     Route: 065
     Dates: start: 20240428
  9. METHADONE [Concomitant]
     Active Substance: METHADONE HYDROCHLORIDE
     Route: 065
     Dates: start: 20241230
  10. METHADONE [Concomitant]
     Active Substance: METHADONE HYDROCHLORIDE
     Dosage: GREATER THAN
     Route: 065
     Dates: start: 2025
  11. CYMBALTA [Concomitant]
     Active Substance: DULOXETINE HYDROCHLORIDE
     Indication: Pain management
     Dosage: DAILY
     Route: 065
  12. NAMENDA [Concomitant]
     Active Substance: MEMANTINE HYDROCHLORIDE
     Indication: Pain management
     Route: 065
     Dates: start: 201903
  13. FENTANYL [Concomitant]
     Active Substance: FENTANYL
     Indication: Pain management
     Dosage: 75MCG DAILY
     Route: 065
     Dates: start: 202103
  14. INSULIN HUMAN [Concomitant]
     Active Substance: INSULIN HUMAN
     Indication: Hypoglycaemia
     Dosage: 120 UNITS
     Route: 065
     Dates: start: 20190406
  15. INSULIN HUMAN [Concomitant]
     Active Substance: INSULIN HUMAN
     Dosage: 120 UNITS
     Route: 065
     Dates: start: 20200302
  16. INSULIN HUMAN [Concomitant]
     Active Substance: INSULIN HUMAN
     Dosage: 120 UNITS
     Route: 065
     Dates: start: 20200511
  17. INSULIN HUMAN [Concomitant]
     Active Substance: INSULIN HUMAN
     Dosage: 120 UNITS
     Route: 065
     Dates: start: 20200511
  18. INSULIN HUMAN [Concomitant]
     Active Substance: INSULIN HUMAN
     Dosage: 120 UNITS
     Route: 065
     Dates: start: 20230123
  19. INSULIN HUMAN [Concomitant]
     Active Substance: INSULIN HUMAN
     Dosage: 90 UNITS
     Route: 065
     Dates: start: 20230511
  20. INSULIN HUMAN [Concomitant]
     Active Substance: INSULIN HUMAN
     Dosage: 90 UNITS
     Route: 065
     Dates: start: 20230918
  21. INSULIN HUMAN [Concomitant]
     Active Substance: INSULIN HUMAN
     Dosage: 80 UNITS
     Route: 065
     Dates: start: 20240122
  22. INSULIN HUMAN [Concomitant]
     Active Substance: INSULIN HUMAN
     Dosage: 60 UNITS
     Route: 065
     Dates: start: 20241230
  23. INSULIN HUMAN [Concomitant]
     Active Substance: INSULIN HUMAN
     Dosage: 56 UNITS
     Route: 065
     Dates: start: 20240428

REACTIONS (1)
  - Intentional overdose [Unknown]
